FAERS Safety Report 7534835-3 (Version None)
Quarter: 2011Q2

REPORT INFORMATION
  Report Type: 
  Country: None (occurrence: None)
  Receive Date: 20110609
  Receipt Date: 20081007
  Transmission Date: 20111010
  Serious: Yes (Other)
  Sender: FDA-Public Use
  Company Number: PHHY2008GB22701

PATIENT
  Sex: Male

DRUGS (10)
  1. VALPROATE SODIUM [Concomitant]
     Indication: EPILEPSY
     Dosage: 400 MG, BID
     Route: 048
  2. BECLOMETHASONE DIPROPIONATE [Concomitant]
     Indication: ASTHMA
     Dosage: 400 UG, UNK
  3. IPRATROPIUM BROMIDE [Concomitant]
     Indication: SALIVARY HYPERSECRETION
     Route: 045
     Dates: end: 20080718
  4. FERROUS SULFATE TAB [Concomitant]
     Indication: ANAEMIA
     Dates: start: 20080601, end: 20080701
  5. LACTULOSE [Concomitant]
     Indication: CONSTIPATION
     Dosage: 15 ML, BID
     Route: 048
     Dates: end: 20080721
  6. FYBOGEL [Concomitant]
     Route: 048
  7. CLOZAPINE [Suspect]
     Route: 048
     Dates: start: 20040101
  8. ASCORBIC ACID [Concomitant]
  9. AMISULPRIDE [Concomitant]
     Indication: SCHIZOPHRENIA
     Dosage: 300 MG, UNK
     Route: 048
  10. LANSOPRAZOLE [Concomitant]
     Dosage: 30 MG, BID
     Route: 048
     Dates: start: 20080206, end: 20080807

REACTIONS (6)
  - C-REACTIVE PROTEIN INCREASED [None]
  - ORCHITIS [None]
  - EPIDIDYMAL DISORDER [None]
  - GROIN PAIN [None]
  - ULTRASOUND SCAN ABNORMAL [None]
  - EPIDIDYMITIS [None]
